FAERS Safety Report 19119809 (Version 2)
Quarter: 2021Q2

REPORT INFORMATION
  Report Type: Spontaneous
  Country: US (occurrence: US)
  Receive Date: 20210412
  Receipt Date: 20210415
  Transmission Date: 20210717
  Serious: Yes (Other)
  Sender: FDA-Public Use
  Company Number: US-SA-2021SA118787

PATIENT
  Age: 72 Year
  Sex: Male

DRUGS (17)
  1. ACETYLSALICYLIC ACID [Suspect]
     Active Substance: ASPIRIN
     Indication: PRODUCT USED FOR UNKNOWN INDICATION
     Dosage: 81 MG, QD
     Route: 048
  2. FOSINOPRIL PLUS ZENTIVA [FOSINOPRIL SODIUM\HYDROCHLOROTHIAZIDE] [Suspect]
     Active Substance: FOSINOPRIL SODIUM\HYDROCHLOROTHIAZIDE
     Indication: PRODUCT USED FOR UNKNOWN INDICATION
     Dosage: 40 MG, BID
     Route: 048
  3. MEGACE [Suspect]
     Active Substance: MEGESTROL ACETATE
     Indication: INCREASED APPETITE
     Dosage: 160 MG/ML
     Route: 048
  4. UNISOM NIGHT TIME SLEEP?AID [Suspect]
     Active Substance: DIPHENHYDRAMINE HYDROCHLORIDE
     Indication: PROPHYLAXIS
     Dosage: 50 MG (CYCLICAL)
     Route: 042
  5. OMEPRAZOLE. [Suspect]
     Active Substance: OMEPRAZOLE
     Indication: PRODUCT USED FOR UNKNOWN INDICATION
     Dosage: 40 DF (20U TWICE PER DAY)
     Route: 048
  6. PHENERGAN [Suspect]
     Active Substance: PROMETHAZINE HYDROCHLORIDE
     Indication: NAUSEA
     Dosage: 25 MG, PRN
     Route: 048
  7. CARBOPLATIN. [Suspect]
     Active Substance: CARBOPLATIN
     Indication: CHEMOTHERAPY
     Dosage: UNK, CYCLIC
     Route: 042
     Dates: start: 20100414
  8. BETROA [Suspect]
     Active Substance: DROSPIRENONE\ETHINYL ESTRADIOL
     Indication: PRODUCT USED FOR UNKNOWN INDICATION
     Dosage: 4 MG, QD
     Route: 048
  9. PLAVIX [Suspect]
     Active Substance: CLOPIDOGREL BISULFATE
     Indication: PRODUCT USED FOR UNKNOWN INDICATION
     Dosage: 75 MG, QD
     Route: 048
  10. PACLITAXEL. [Suspect]
     Active Substance: PACLITAXEL
     Indication: CHEMOTHERAPY
     Dosage: 200 MG/M2 (CYCLICAL)
     Route: 042
     Dates: start: 20100414
  11. ONDANSETRON [Suspect]
     Active Substance: ONDANSETRON
     Indication: PROPHYLAXIS OF NAUSEA AND VOMITING
     Dosage: 8 MG (CYCLIC)
     Route: 042
  12. DEXAMETHASONE. [Suspect]
     Active Substance: DEXAMETHASONE
     Indication: PROPHYLAXIS OF NAUSEA AND VOMITING
     Dosage: 20 MG (CYCLIC)
     Route: 042
  13. ZANTAC [Suspect]
     Active Substance: RANITIDINE HYDROCHLORIDE
     Indication: PROPHYLAXIS
     Dosage: 50 MG (CYCLIC)
     Route: 042
  14. HYDROCHLOROTHIAZIDE. [Suspect]
     Active Substance: HYDROCHLOROTHIAZIDE
     Indication: PRODUCT USED FOR UNKNOWN INDICATION
     Dosage: 12.5 MG, QD
     Route: 048
  15. CARVEDILOL. [Suspect]
     Active Substance: CARVEDILOL
     Indication: PRODUCT USED FOR UNKNOWN INDICATION
     Dosage: 50 MG, BID
     Route: 048
  16. SIMVASTATIN. [Suspect]
     Active Substance: SIMVASTATIN
     Indication: PRODUCT USED FOR UNKNOWN INDICATION
     Dosage: 80 MG, HS
     Route: 048
  17. CALCIUM/VITAMIN D [Suspect]
     Active Substance: CALCIUM\VITAMIN D
     Indication: PROPHYLAXIS OF NAUSEA AND VOMITING
     Dosage: 1 DF (50000 UNIT CYCLIC)
     Route: 042

REACTIONS (30)
  - Failure to thrive [Unknown]
  - Blood urea increased [Unknown]
  - Hypophagia [Unknown]
  - Decreased appetite [Unknown]
  - Lung adenocarcinoma stage IV [Unknown]
  - Blood potassium decreased [Unknown]
  - Gait inability [Unknown]
  - Dehydration [Unknown]
  - Hypocalcaemia [Recovered/Resolved]
  - Monocyte count decreased [Unknown]
  - Tachycardia [Unknown]
  - Hypomagnesaemia [Recovered/Resolved]
  - Listless [Unknown]
  - Lung adenocarcinoma [Unknown]
  - Pneumonia [Unknown]
  - Prothrombin time prolonged [Unknown]
  - White blood cell count decreased [Unknown]
  - Blood glucose increased [Unknown]
  - Eating disorder [Unknown]
  - Neutropenia [Unknown]
  - Heart rate decreased [Unknown]
  - Red blood cell count decreased [Unknown]
  - Gait inability [Unknown]
  - Asthenia [Unknown]
  - Blood chloride decreased [Unknown]
  - Diarrhoea [Unknown]
  - Haemoglobin decreased [Unknown]
  - Atelectasis [Unknown]
  - Haematocrit [Unknown]
  - Hyponatraemia [Unknown]

NARRATIVE: CASE EVENT DATE: 20100421
